FAERS Safety Report 5045593-9 (Version None)
Quarter: 2006Q3

REPORT INFORMATION
  Report Type: 
  Country: None (occurrence: None)
  Receive Date: 20060707
  Receipt Date: 20060626
  Transmission Date: 20061208
  Serious: Yes (Death)
  Sender: FDA-Public Use
  Company Number: US-ROCHE-453269

PATIENT
  Age: 44 Year
  Sex: Male

DRUGS (2)
  1. VALIUM [Suspect]
     Indication: ANXIETY
     Route: 065
  2. METHADOSE [Suspect]
     Indication: BACK PAIN
     Route: 048
     Dates: start: 20050615

REACTIONS (1)
  - DRUG TOXICITY [None]
